FAERS Safety Report 6672957-X (Version None)
Quarter: 2010Q2

REPORT INFORMATION
  Report Type: 
  Country: None (occurrence: None)
  Receive Date: 20100408
  Receipt Date: 20100402
  Transmission Date: 20101027
  Serious: Yes (Death, Life-Threatening, Hospitalization, Disabling, Other)
  Sender: FDA-Public Use
  Company Number: A0853223A

PATIENT
  Age: 69 Year
  Sex: Female

DRUGS (3)
  1. ARIXTRA [Suspect]
     Indication: THROMBOSIS PROPHYLAXIS
     Dosage: 2.5MG PER DAY
     Route: 058
     Dates: start: 20100120, end: 20100130
  2. ASPIRIN [Concomitant]
  3. PLAVIX [Concomitant]

REACTIONS (4)
  - COGNITIVE DISORDER [None]
  - DEATH [None]
  - HAEMORRHAGE INTRACRANIAL [None]
  - INCOHERENT [None]
